FAERS Safety Report 11805854 (Version 2)
Quarter: 2015Q4

REPORT INFORMATION
  Report Type: Spontaneous
  Country: US (occurrence: US)
  Receive Date: 20151207
  Receipt Date: 20151231
  Transmission Date: 20160305
  Serious: No
  Sender: FDA-Public Use
  Company Number: US-ASTRAZENECA-2015SF20213

PATIENT
  Sex: Female
  Weight: 59 kg

DRUGS (1)
  1. PULMICORT FLEXHALER [Suspect]
     Active Substance: BUDESONIDE
     Dosage: 90UG 2 PUFFS TWO TIMES A DAY
     Route: 055
     Dates: start: 201511

REACTIONS (3)
  - Product quality issue [Unknown]
  - Medication residue present [Unknown]
  - Dysgeusia [Unknown]
